FAERS Safety Report 17135740 (Version 3)
Quarter: 2020Q3

REPORT INFORMATION
  Report Type: Report from Study
  Country: CA (occurrence: CA)
  Receive Date: 20191210
  Receipt Date: 20200921
  Transmission Date: 20201102
  Serious: Yes (Other)
  Sender: FDA-Public Use
  Company Number: CA-PFIZER INC-2019532008

PATIENT
  Age: 53 Year
  Sex: Male

DRUGS (26)
  1. EFFEXOR [Suspect]
     Active Substance: VENLAFAXINE HYDROCHLORIDE
     Indication: MIGRAINE
     Dosage: UNK
     Route: 065
  2. GABAPENTIN. [Suspect]
     Active Substance: GABAPENTIN
     Dosage: UNK
     Route: 065
  3. NORTRIPTYLINE [Suspect]
     Active Substance: NORTRIPTYLINE
     Dosage: UNK
     Route: 065
  4. ONDANSETRON HYDROCHLORIDE. [Suspect]
     Active Substance: ONDANSETRON HYDROCHLORIDE
     Indication: MIGRAINE
     Dosage: UNK
     Route: 065
  5. AXERT [Suspect]
     Active Substance: ALMOTRIPTAN MALATE
     Dosage: UNK
     Route: 065
  6. TYLENOL [Suspect]
     Active Substance: ACETAMINOPHEN
     Dosage: UNK
     Route: 065
  7. CELEBREX [Suspect]
     Active Substance: CELECOXIB
     Dosage: 200 MG
     Route: 065
  8. CODEINE [Suspect]
     Active Substance: CODEINE
     Indication: MIGRAINE
     Dosage: UNK
     Route: 065
  9. DEMEROL [Suspect]
     Active Substance: MEPERIDINE HYDROCHLORIDE
     Dosage: UNK
     Route: 065
  10. DIHYDROERGOTAMINE [Suspect]
     Active Substance: DIHYDROERGOTAMINE
     Indication: MIGRAINE
     Dosage: UNK
     Route: 065
  11. TENORETIC [Suspect]
     Active Substance: ATENOLOL\CHLORTHALIDONE
     Dosage: 15 MG
     Route: 048
  12. VOLTAREN [DICLOFENAC] [Suspect]
     Active Substance: DICLOFENAC SODIUM
     Indication: MIGRAINE
     Dosage: UNK
     Route: 065
  13. AMITRIPTYLINE [Suspect]
     Active Substance: AMITRIPTYLINE
     Dosage: UNK
     Route: 065
  14. MAXALT [Suspect]
     Active Substance: RIZATRIPTAN BENZOATE
     Dosage: UNK
     Route: 065
  15. TOPAMAX [Suspect]
     Active Substance: TOPIRAMATE
     Dosage: UNK
     Route: 065
  16. TORADOL [Suspect]
     Active Substance: KETOROLAC TROMETHAMINE
     Dosage: UNK
     Route: 065
  17. IBUPROFEN. [Suspect]
     Active Substance: IBUPROFEN
     Dosage: UNK
     Route: 065
  18. BOTOX [Suspect]
     Active Substance: ONABOTULINUMTOXINA
     Dosage: UNK
     Route: 065
  19. ENDOCET [Suspect]
     Active Substance: ACETAMINOPHEN\OXYCODONE HYDROCHLORIDE
     Indication: MIGRAINE
     Dosage: UNK
     Route: 065
  20. VIMOVO [Suspect]
     Active Substance: ESOMEPRAZOLE MAGNESIUM\NAPROXEN
     Dosage: UNK
     Route: 048
  21. HYDROMORPHONE HYDROCHLORIDE. [Suspect]
     Active Substance: HYDROMORPHONE HYDROCHLORIDE
     Indication: MIGRAINE
     Dosage: UNK
     Route: 065
  22. MORPHINE SULFATE. [Suspect]
     Active Substance: MORPHINE SULFATE
     Indication: MIGRAINE
     Dosage: UNK
     Route: 065
  23. PROPANOLOL HCL [Suspect]
     Active Substance: PROPRANOLOL HYDROCHLORIDE
     Indication: MIGRAINE
     Dosage: UNK
     Route: 065
  24. DULOXETINE. [Suspect]
     Active Substance: DULOXETINE
     Indication: MIGRAINE
     Dosage: 600 MG
     Route: 065
  25. KETAMINE [Suspect]
     Active Substance: KETAMINE
     Indication: MIGRAINE
     Dosage: UNK
     Route: 065
  26. TRAMACET [Suspect]
     Active Substance: ACETAMINOPHEN\TRAMADOL
     Indication: MIGRAINE
     Dosage: UNK
     Route: 065

REACTIONS (8)
  - Off label use [Unknown]
  - Drug ineffective [Unknown]
  - Hyperhidrosis [Unknown]
  - Nephrolithiasis [Unknown]
  - Product use in unapproved indication [Unknown]
  - Nausea [Unknown]
  - Sedation [Unknown]
  - Nightmare [Unknown]
